FAERS Safety Report 8023113-4 (Version None)
Quarter: 2012Q1

REPORT INFORMATION
  Report Type: 
  Country: None (occurrence: None)
  Receive Date: 20120104
  Receipt Date: 20111227
  Transmission Date: 20120608
  Serious: Yes (Life-Threatening, Hospitalization, Other)
  Sender: FDA-Public Use
  Company Number: US-PFIZER INC-2010160308

PATIENT
  Age: 30 Year
  Sex: Female

DRUGS (3)
  1. METOPROLOL [Suspect]
     Indication: INTENTIONAL OVERDOSE
     Dosage: ONCE
  2. AMIODARONE HCL [Suspect]
     Indication: INTENTIONAL OVERDOSE
     Dosage: ONCE
  3. DILTIAZEM HCL [Suspect]
     Indication: INTENTIONAL OVERDOSE
     Dosage: ONCE

REACTIONS (2)
  - INTENTIONAL OVERDOSE [None]
  - CARDIOGENIC SHOCK [None]
